FAERS Safety Report 18917930 (Version 1)
Quarter: 2021Q1

REPORT INFORMATION
  Report Type: Spontaneous
  Country: CA (occurrence: CA)
  Receive Date: 20210220
  Receipt Date: 20210220
  Transmission Date: 20210420
  Serious: Yes (Other)
  Sender: FDA-Public Use
  Company Number: CA-AUROBINDO-AUR-APL-2021-006641

PATIENT
  Age: 58 Year
  Sex: Female

DRUGS (2)
  1. MIRTAZAPINE TABLET [Suspect]
     Active Substance: MIRTAZAPINE
     Indication: INSOMNIA
     Dosage: 75 MILLIGRAM, ONCE A DAY
     Route: 048
  2. SILENOR [Concomitant]
     Active Substance: DOXEPIN HYDROCHLORIDE
     Indication: PRODUCT USED FOR UNKNOWN INDICATION
     Dosage: UNK
     Route: 065

REACTIONS (2)
  - Feeling abnormal [Unknown]
  - Suicidal ideation [Unknown]
